FAERS Safety Report 15406656 (Version 1)
Quarter: 2018Q3

REPORT INFORMATION
  Report Type: Spontaneous
  Country: JP (occurrence: JP)
  Receive Date: 20180920
  Receipt Date: 20180920
  Transmission Date: 20181010
  Serious: Yes (Hospitalization)
  Sender: FDA-Public Use
  Company Number: JP-ASTRAZENECA-2018SF19426

PATIENT
  Age: 40 Year
  Sex: Male

DRUGS (9)
  1. ASENAPINE [Suspect]
     Active Substance: ASENAPINE
     Indication: PRODUCT USED FOR UNKNOWN INDICATION
     Dosage: 105.0MG ONCE/SINGLE ADMINISTRATION
     Route: 048
  2. LAMOTRIGINE. [Suspect]
     Active Substance: LAMOTRIGINE
     Indication: PRODUCT USED FOR UNKNOWN INDICATION
     Dosage: 4100.0MG ONCE/SINGLE ADMINISTRATION
     Route: 048
  3. LORAZEPAM. [Suspect]
     Active Substance: LORAZEPAM
     Indication: PRODUCT USED FOR UNKNOWN INDICATION
     Dosage: 41.0MG ONCE/SINGLE ADMINISTRATION
     Route: 048
  4. VENLAFAXINE HYDROCHLORIDE. [Suspect]
     Active Substance: VENLAFAXINE HYDROCHLORIDE
     Indication: PRODUCT USED FOR UNKNOWN INDICATION
     Dosage: 4200.0MG ONCE/SINGLE ADMINISTRATION
     Route: 048
  5. ESZOPICLONE. [Suspect]
     Active Substance: ESZOPICLONE
     Indication: PRODUCT USED FOR UNKNOWN INDICATION
     Dosage: 60.0MG ONCE/SINGLE ADMINISTRATION
     Route: 048
  6. SENNOSIDE A+B [Suspect]
     Active Substance: SENNOSIDES A AND B
     Indication: PRODUCT USED FOR UNKNOWN INDICATION
     Dosage: 12.0MG ONCE/SINGLE ADMINISTRATION
     Route: 048
  7. QUETIAPINE. [Suspect]
     Active Substance: QUETIAPINE
     Indication: PRODUCT USED FOR UNKNOWN INDICATION
     Dosage: 4000.0MG ONCE/SINGLE ADMINISTRATION
     Route: 048
  8. NITRAZEPAM [Suspect]
     Active Substance: NITRAZEPAM
     Indication: PRODUCT USED FOR UNKNOWN INDICATION
     Dosage: 180.0MG ONCE/SINGLE ADMINISTRATION
     Route: 048
  9. QUETIAPINE. [Suspect]
     Active Substance: QUETIAPINE
     Indication: PRODUCT USED FOR UNKNOWN INDICATION
     Dosage: 2000.0MG ONCE/SINGLE ADMINISTRATION
     Route: 048

REACTIONS (7)
  - Blood pressure decreased [Unknown]
  - Hyperreflexia [Unknown]
  - Intentional overdose [Unknown]
  - Depressed level of consciousness [Recovering/Resolving]
  - Altered state of consciousness [Unknown]
  - Heart rate increased [Unknown]
  - Miosis [Unknown]
